FAERS Safety Report 5380772-2 (Version None)
Quarter: 2007Q3

REPORT INFORMATION
  Report Type: 
  Country: None (occurrence: None)
  Receive Date: 20070706
  Receipt Date: 20070625
  Transmission Date: 20080115
  Serious: Yes (Hospitalization, Disabling, Other)
  Sender: FDA-Public Use
  Company Number: B0438876A

PATIENT
  Age: 76 Year
  Sex: Female
  Weight: 70 kg

DRUGS (11)
  1. ORBENIN CAP [Suspect]
     Indication: ERYSIPELAS
     Dosage: 500MG THREE TIMES PER DAY
     Route: 048
     Dates: start: 20060101, end: 20060101
  2. ORACILLIN [Suspect]
     Indication: ERYSIPELAS
     Route: 048
     Dates: start: 20050101, end: 20060810
  3. POLARAMINE [Concomitant]
     Dates: end: 20060810
  4. DIOSMINE [Concomitant]
  5. PARACETAMOL [Concomitant]
  6. PYOSTACINE [Concomitant]
  7. DRESSING [Concomitant]
  8. LASIX [Concomitant]
     Dates: end: 20060810
  9. ENDOTELON [Concomitant]
     Dates: end: 20060810
  10. ACETAMINOPHEN [Concomitant]
     Dates: end: 20060810
  11. ALDACTAZINE [Concomitant]
     Dates: end: 20060810

REACTIONS (26)
  - ABASIA [None]
  - ANAEMIA [None]
  - ANGIOPATHY [None]
  - ARTERIAL DISORDER [None]
  - CONDITION AGGRAVATED [None]
  - DECUBITUS ULCER [None]
  - DISABILITY [None]
  - DRUG HYPERSENSITIVITY [None]
  - EOSINOPHIL COUNT DECREASED [None]
  - EOSINOPHILIA [None]
  - ERECTILE DYSFUNCTION [None]
  - EXTREMITY NECROSIS [None]
  - FATIGUE [None]
  - HYPOALBUMINAEMIA [None]
  - IMMUNOGLOBULINS INCREASED [None]
  - INFLAMMATION [None]
  - MICROCYTIC ANAEMIA [None]
  - MONOCYTE COUNT INCREASED [None]
  - NECROSIS [None]
  - PROTEINURIA [None]
  - PRURITUS [None]
  - PYREXIA [None]
  - RHABDOMYOLYSIS [None]
  - SERUM FERRITIN DECREASED [None]
  - SKIN ULCER [None]
  - THROMBOSIS [None]
